FAERS Safety Report 13662715 (Version 1)
Quarter: 2017Q2

REPORT INFORMATION
  Report Type: Spontaneous
  Country: US (occurrence: US)
  Receive Date: 20170616
  Receipt Date: 20170616
  Transmission Date: 20170830
  Serious: Yes (Disabling, Other)
  Sender: FDA-Public Use
  Company Number: None

PATIENT
  Age: 23 Year
  Sex: Female
  Weight: 60.75 kg

DRUGS (2)
  1. SUBOXONE [Concomitant]
     Active Substance: BUPRENORPHINE HYDROCHLORIDE\NALOXONE HYDROCHLORIDE
  2. SUBOXONE [Suspect]
     Active Substance: BUPRENORPHINE HYDROCHLORIDE\NALOXONE HYDROCHLORIDE
     Indication: THERAPY CESSATION
     Dosage: ?          QUANTITY:1 FILM;?
     Route: 060
     Dates: start: 20170531, end: 20170616

REACTIONS (4)
  - Tongue haemorrhage [None]
  - Atrophic glossitis [None]
  - Dental caries [None]
  - Stomatitis [None]

NARRATIVE: CASE EVENT DATE: 20170610
